FAERS Safety Report 4364422-X (Version None)
Quarter: 2004Q2

REPORT INFORMATION
  Report Type: 
  Country: None (occurrence: None)
  Receive Date: 20040525
  Receipt Date: 20040513
  Transmission Date: 20050107
  Serious: Yes (Death)
  Sender: FDA-Public Use
  Company Number: FR-ROCHE-367794

PATIENT
  Age: 54 Year
  Sex: Female
  Weight: 72 kg

DRUGS (4)
  1. PEGASYS [Suspect]
     Dosage: FORM WAS REPORTED AS INJECTABLE SOLUTION.
     Route: 058
  2. COPEGUS [Suspect]
     Route: 048
  3. BISOPROLOL FUMARATE [Concomitant]
     Indication: HYPERTENSION
  4. DEROXAT [Concomitant]
     Indication: DEPRESSION
     Dosage: DOSAGE REGIMEN WAS REPORTED AS 10 MG.

REACTIONS (2)
  - ADRENAL CORTEX NECROSIS [None]
  - SEPTIC SHOCK [None]
